FAERS Safety Report 4954240-3 (Version None)
Quarter: 2006Q1

REPORT INFORMATION
  Report Type: 
  Country: None (occurrence: None)
  Receive Date: 20060327
  Receipt Date: 20050801
  Transmission Date: 20060701
  Serious: Yes (Hospitalization, Disabling)
  Sender: FDA-Public Use
  Company Number: US-MERCK-0508USA00734

PATIENT
  Sex: Male
  Weight: 100 kg

DRUGS (13)
  1. VIOXX [Suspect]
     Indication: PAIN
     Route: 048
     Dates: start: 20020601, end: 20041001
  2. ULTRAM [Concomitant]
     Route: 065
  3. ALTACE [Concomitant]
     Route: 065
  4. TOPROL-XL [Concomitant]
     Route: 065
  5. PROZAC [Concomitant]
     Route: 065
  6. ZOLOFT [Concomitant]
     Route: 065
  7. CELEXA [Concomitant]
     Route: 065
  8. WELLBUTRIN [Concomitant]
     Route: 065
  9. LEXAPRO [Concomitant]
     Route: 065
  10. XANAX [Concomitant]
     Route: 065
  11. LIPITOR [Concomitant]
     Route: 065
  12. NIACIN [Concomitant]
     Route: 065
  13. PREVACID [Concomitant]
     Route: 065

REACTIONS (5)
  - ARTHROPATHY [None]
  - CHRONIC FATIGUE SYNDROME [None]
  - DEPRESSION [None]
  - MENTAL DISORDER [None]
  - MYOCARDIAL INFARCTION [None]
